FAERS Safety Report 7877562-5 (Version None)
Quarter: 2011Q4

REPORT INFORMATION
  Report Type: 
  Country: None (occurrence: None)
  Receive Date: 20111031
  Receipt Date: 20111024
  Transmission Date: 20120403
  Serious: Yes (Hospitalization)
  Sender: FDA-Public Use
  Company Number: DE-PFIZER INC-2011259366

PATIENT
  Sex: Female

DRUGS (16)
  1. BLINDED THERAPY [Suspect]
     Indication: PULMONARY ARTERIAL HYPERTENSION
     Dosage: UNK
     Route: 048
     Dates: start: 20110526, end: 20110830
  2. TORSEMIDE [Concomitant]
     Dosage: UNK
     Dates: start: 20110201, end: 20110613
  3. KALINOR [Concomitant]
     Dosage: UNK
     Dates: start: 20110618
  4. FERROUS SULFATE TAB [Concomitant]
     Dosage: UNK
     Dates: start: 20110815
  5. OXYGEN [Concomitant]
     Dosage: UNK
     Dates: start: 20110218
  6. RIOCIGUAT [Suspect]
     Dosage: 20 G, AS NEEDED
     Route: 061
     Dates: start: 20110914
  7. METOPROLOL [Concomitant]
     Dosage: UNK
     Dates: start: 20020101, end: 20110617
  8. EZETIMIBE [Concomitant]
     Dosage: UNK
     Dates: start: 20050101
  9. CONCOR [Concomitant]
     Dosage: UNK
     Dates: start: 20110617
  10. SILDENAFIL CITRATE [Suspect]
     Dosage: 20 MG, 3X/DAY
     Route: 065
  11. MARCUMAR [Concomitant]
     Dosage: UNK
     Dates: start: 20110201
  12. ALDACTONE [Concomitant]
     Dosage: UNK
     Dates: start: 20110301, end: 20110616
  13. LEVOTHYROXINE SODIUM [Concomitant]
     Dosage: UNK
     Dates: start: 19950101
  14. CANDESARTAN CILEXETIL [Concomitant]
     Dosage: UNK
     Dates: start: 20050101, end: 20110530
  15. MEGACILLIN [Concomitant]
     Route: 065
  16. PARACODIN BITARTRATE TAB [Concomitant]
     Dosage: UNK
     Dates: start: 20100801

REACTIONS (1)
  - RIGHT VENTRICULAR FAILURE [None]
